FAERS Safety Report 7634853 (Version 3)
Quarter: 2013Q3

REPORT INFORMATION
  Report Type: Spontaneous
  Country: US (occurrence: US)
  Receive Date: 20101020
  Receipt Date: 20130911
  Transmission Date: 20140515
  Serious: Yes (Hospitalization, Other)
  Sender: FDA-Public Use
  Company Number: US-ROCHE-721926

PATIENT
  Age: 18 Year
  Sex: Female
  Weight: 68 kg

DRUGS (2)
  1. ACCUTANE [Suspect]
     Indication: ACNE
     Route: 065
     Dates: start: 1992, end: 1992
  2. ACCUTANE [Suspect]
     Route: 065
     Dates: start: 199301, end: 199303

REACTIONS (12)
  - Colitis ulcerative [Unknown]
  - Crohn^s disease [Unknown]
  - Pancreatitis acute [Unknown]
  - Inflammatory bowel disease [Unknown]
  - Depression [Unknown]
  - Intestinal obstruction [Unknown]
  - Perirectal abscess [Unknown]
  - Intestinal anastomosis complication [Unknown]
  - Erythema nodosum [Unknown]
  - Proctitis [Unknown]
  - Oral herpes [Unknown]
  - Nephrolithiasis [Unknown]
